FAERS Safety Report 4809313-2 (Version None)
Quarter: 2005Q4

REPORT INFORMATION
  Report Type: 
  Country: None (occurrence: None)
  Receive Date: 20051021
  Receipt Date: 20020819
  Transmission Date: 20060501
  Serious: No
  Sender: FDA-Public Use
  Company Number: USA020820001

PATIENT
  Age: 40 Year
  Sex: Female

DRUGS (2)
  1. ZYPREXA [Suspect]
     Indication: PSYCHOTIC DISORDER
     Dosage: 2.5 MG/DAY
     Dates: start: 19980101, end: 20020701
  2. PROZAC [Suspect]
     Indication: MAJOR DEPRESSION
     Dosage: 40 MG/DAY
     Dates: start: 19980101, end: 20020701

REACTIONS (1)
  - LEUKOPENIA [None]
